FAERS Safety Report 5653402-X (Version None)
Quarter: 2008Q1

REPORT INFORMATION
  Report Type: 
  Country: None (occurrence: None)
  Receive Date: 20080306
  Receipt Date: 20080229
  Transmission Date: 20080703
  Serious: Yes (Life-Threatening, Hospitalization)
  Sender: FDA-Public Use
  Company Number: A0712518A

PATIENT
  Sex: Female

DRUGS (1)
  1. PARNATE [Suspect]
     Indication: BIPOLAR DISORDER
     Dosage: 60MGD PER DAY
     Route: 048

REACTIONS (7)
  - CRYING [None]
  - DRUG WITHDRAWAL SYNDROME [None]
  - IRRITABILITY [None]
  - OVERDOSE [None]
  - PARANOIA [None]
  - SOCIAL PHOBIA [None]
  - SUICIDAL IDEATION [None]
